FAERS Safety Report 21658658 (Version 1)
Quarter: 2022Q4

REPORT INFORMATION
  Report Type: Spontaneous
  Country: DE (occurrence: DE)
  Receive Date: 20221129
  Receipt Date: 20221129
  Transmission Date: 20230112
  Serious: Yes (Hospitalization, Other)
  Sender: FDA-Public Use
  Company Number: DE-DSJP-DSE-2022-142348

PATIENT
  Age: 86 Year
  Sex: Male
  Weight: 86 kg

DRUGS (2)
  1. EDOXABAN TOSYLATE [Suspect]
     Active Substance: EDOXABAN TOSYLATE
     Indication: Atrial fibrillation
     Dosage: 60 MG, QD
     Route: 065
     Dates: start: 2019
  2. CANDESARTAN [Concomitant]
     Active Substance: CANDESARTAN
     Indication: Blood pressure increased
     Dosage: 16 MG
     Route: 065

REACTIONS (4)
  - Full blood count decreased [Unknown]
  - Haemoglobin decreased [Unknown]
  - Cardiac valve disease [Unknown]
  - Spinal cord disorder [Unknown]

NARRATIVE: CASE EVENT DATE: 20200901
